FAERS Safety Report 9624892 (Version 1)
Quarter: 2013Q4

REPORT INFORMATION
  Report Type: Spontaneous
  Country: IT (occurrence: IT)
  Receive Date: 20131016
  Receipt Date: 20131016
  Transmission Date: 20140711
  Serious: Yes (Hospitalization)
  Sender: FDA-Public Use
  Company Number: PHHY2013IT112354

PATIENT
  Sex: Male

DRUGS (12)
  1. CARVEDILOL [Suspect]
     Dosage: 25 MG, QD
     Route: 048
     Dates: start: 20080601, end: 20130918
  2. LASIX [Suspect]
     Dosage: 25 MG, QID
     Route: 048
     Dates: start: 20080601, end: 20130918
  3. LASIX [Suspect]
     Dosage: 1 DF, DAILY
  4. MICARDIS [Suspect]
     Dosage: 20 MG, QD
     Route: 048
     Dates: start: 20130101, end: 20130918
  5. ALDACTONE [Suspect]
     Dosage: 25 MG, QD
     Route: 048
     Dates: start: 20130101, end: 20130918
  6. AVODART [Concomitant]
  7. ZYLORIC [Concomitant]
     Dosage: 300 MG, UNK
  8. TAVOR (LORAZEPAM) [Concomitant]
     Dosage: 1 MG, UNK
  9. COUMADIN [Concomitant]
     Dosage: 5 MG, UNK
  10. LANSOX [Concomitant]
  11. AMIODARONE [Concomitant]
     Dates: start: 20080101
  12. ROSUVASTATIN [Concomitant]

REACTIONS (4)
  - Dehydration [Recovering/Resolving]
  - Hypotension [Recovering/Resolving]
  - Syncope [Recovering/Resolving]
  - Renal failure acute [Recovering/Resolving]
